FAERS Safety Report 25240848 (Version 1)
Quarter: 2025Q2

REPORT INFORMATION
  Report Type: Spontaneous
  Country: CN (occurrence: CN)
  Receive Date: 20250425
  Receipt Date: 20250425
  Transmission Date: 20250716
  Serious: Yes (Other)
  Sender: NOVARTIS
  Company Number: CN-002147023-NVSC2025CN067682

PATIENT
  Age: 41 Year
  Sex: Male
  Weight: 82 kg

DRUGS (1)
  1. TEGRETOL [Suspect]
     Active Substance: CARBAMAZEPINE
     Indication: Epilepsy
     Dosage: 0.200 G, TID
     Route: 048
     Dates: start: 20250401, end: 20250410

REACTIONS (4)
  - Drug eruption [Unknown]
  - Rash [Recovering/Resolving]
  - Rash maculo-papular [Recovering/Resolving]
  - Pruritus [Unknown]

NARRATIVE: CASE EVENT DATE: 20250410
